FAERS Safety Report 19573744 (Version 1)
Quarter: 2021Q3

REPORT INFORMATION
  Report Type: Report from Study
  Country: NO (occurrence: NO)
  Receive Date: 20210717
  Receipt Date: 20210717
  Transmission Date: 20211014
  Serious: Yes (Hospitalization, Other)
  Sender: FDA-Public Use
  Company Number: NO-TAKEDA-2021TUS042310

PATIENT
  Age: 69 Year
  Sex: Male

DRUGS (8)
  1. RENILON [Concomitant]
     Indication: SHORT-BOWEL SYNDROME
     Dosage: 125 MILLILITER, BID
     Route: 048
     Dates: start: 20181101
  2. TEDUGLUTIDE [Suspect]
     Active Substance: TEDUGLUTIDE
     Indication: SHORT-BOWEL SYNDROME
     Dosage: 1.25 MILLIGRAM (0.02MG/KG), QD
     Route: 065
     Dates: start: 20200930
  3. TEDUGLUTIDE [Suspect]
     Active Substance: TEDUGLUTIDE
     Indication: SHORT-BOWEL SYNDROME
     Dosage: 1.25 MILLIGRAM (0.02MG/KG), QD
     Route: 065
     Dates: start: 20200930
  4. VANCOMYCIN [Concomitant]
     Active Substance: VANCOMYCIN
     Indication: ENDOCARDITIS
     Dosage: 75 GRAM, 2/WEEK
     Route: 042
     Dates: start: 20190201
  5. TEDUGLUTIDE [Suspect]
     Active Substance: TEDUGLUTIDE
     Indication: SHORT-BOWEL SYNDROME
     Dosage: 1.25 MILLIGRAM (0.02MG/KG), QD
     Route: 065
     Dates: start: 20200930
  6. ZOPICLONE [Concomitant]
     Active Substance: ZOPICLONE
     Indication: SLEEP DISORDER
     Dosage: 7.50 MILLIGRAM, PRN
     Route: 048
     Dates: start: 20181101
  7. TEDUGLUTIDE [Suspect]
     Active Substance: TEDUGLUTIDE
     Indication: SHORT-BOWEL SYNDROME
     Dosage: 1.25 MILLIGRAM (0.02MG/KG), QD
     Route: 065
     Dates: start: 20200930
  8. SUNFLOWER OIL [Concomitant]
     Active Substance: HERBALS\SUNFLOWER OIL
     Indication: SHORT-BOWEL SYNDROME
     Dosage: 30 MILLILITER, TID
     Route: 048
     Dates: start: 20181101

REACTIONS (2)
  - Device related sepsis [Recovered/Resolved]
  - Sepsis [Recovered/Resolved]

NARRATIVE: CASE EVENT DATE: 20201214
